FAERS Safety Report 9153284 (Version 2)
Quarter: 2013Q1

REPORT INFORMATION
  Report Type: Spontaneous
  Country: US (occurrence: US)
  Receive Date: 20130311
  Receipt Date: 20130327
  Transmission Date: 20140127
  Serious: Yes (Hospitalization, Other)
  Sender: FDA-Public Use
  Company Number: US-BIOGENIDEC-2013BI021703

PATIENT
  Age: 72 Year
  Sex: Female

DRUGS (2)
  1. AVONEX [Suspect]
     Indication: MULTIPLE SCLEROSIS
     Route: 030
     Dates: end: 2003
  2. AVONEX [Suspect]
     Indication: MULTIPLE SCLEROSIS
     Route: 030
     Dates: start: 200308

REACTIONS (14)
  - Unresponsive to stimuli [Recovered/Resolved]
  - Bacteraemia [Unknown]
  - Sepsis [Unknown]
  - Urinary tract infection [Unknown]
  - Hiatus hernia [Unknown]
  - Volvulus [Recovered/Resolved]
  - Breast cancer [Unknown]
  - Escherichia test positive [Unknown]
  - Bacterial infection [Unknown]
  - Influenza [Unknown]
  - Diarrhoea [Recovered/Resolved]
  - Confusional state [Not Recovered/Not Resolved]
  - Decreased appetite [Unknown]
  - Pain [Unknown]
